FAERS Safety Report 6367510-1 (Version None)
Quarter: 2009Q3

REPORT INFORMATION
  Report Type: 
  Country: None (occurrence: None)
  Receive Date: 20090915
  Receipt Date: 20090908
  Transmission Date: 20100115
  Serious: Yes (Death, Life-Threatening, Hospitalization)
  Sender: FDA-Public Use
  Company Number: US-JNJFOC-200906 09185

PATIENT
  Age: 64 Year
  Sex: Female
  Weight: 65 kg

DRUGS (1)
  1. DACOGEN [Suspect]
     Indication: REFRACTORY ANAEMIA
     Dosage: CYCLE #1 INTRAVENOUS
     Route: 042

REACTIONS (8)
  - APLASIA [None]
  - ASTHENIA [None]
  - CEREBRAL HAEMORRHAGE [None]
  - CEREBRAL INFARCTION [None]
  - INTESTINAL INFARCTION [None]
  - RENAL INFARCT [None]
  - SPLENIC INFARCTION [None]
  - THROMBOTIC THROMBOCYTOPENIC PURPURA [None]
